FAERS Safety Report 21471727 (Version 2)
Quarter: 2022Q4

REPORT INFORMATION
  Report Type: Spontaneous
  Country: IT (occurrence: None)
  Receive Date: 20221018
  Receipt Date: 20221230
  Transmission Date: 20230112
  Serious: Yes (Other)
  Sender: FDA-Public Use
  Company Number: 2022A341788

PATIENT
  Age: 72 Year
  Sex: Female

DRUGS (2)
  1. ROSUVASTATIN [Suspect]
     Active Substance: ROSUVASTATIN
     Indication: Drug abuse
     Dosage: TAKING 140 MG OF ROSUVASTATIN
     Route: 048
     Dates: start: 20220831, end: 20220831
  2. TAPAZOLE [Suspect]
     Active Substance: METHIMAZOLE
     Indication: Drug abuse
     Dosage: 35 MG, HAS TAKEN 7 TAPAZOLE TABLETS
     Route: 048
     Dates: start: 20220401, end: 20220401

REACTIONS (3)
  - Toxicity to various agents [Recovering/Resolving]
  - Drug abuse [Recovering/Resolving]
  - Vomiting [Recovering/Resolving]

NARRATIVE: CASE EVENT DATE: 20220831
